FAERS Safety Report 5419192-0 (Version None)
Quarter: 2007Q3

REPORT INFORMATION
  Report Type: 
  Country: None (occurrence: None)
  Receive Date: 20070815
  Receipt Date: 20070815
  Transmission Date: 20080115
  Serious: Yes (Hospitalization)
  Sender: FDA-Public Use
  Company Number: None

PATIENT
  Sex: Female
  Weight: 57.2 kg

DRUGS (3)
  1. DAUNORUBICIN HCL [Suspect]
     Dosage: 72.5 MG
  2. CYTARABINE [Suspect]
     Dosage: 161 MG
  3. MYLOTARG [Suspect]
     Dosage: 10 MG

REACTIONS (5)
  - CARDIAC FAILURE CONGESTIVE [None]
  - ELECTROCARDIOGRAM ABNORMAL [None]
  - MYOCARDIAL INFARCTION [None]
  - RENAL FAILURE [None]
  - SINUS TACHYCARDIA [None]
